FAERS Safety Report 5086439-2 (Version None)
Quarter: 2006Q3

REPORT INFORMATION
  Report Type: 
  Country: None (occurrence: None)
  Receive Date: 20060703
  Receipt Date: 20050913
  Transmission Date: 20061208
  Serious: No
  Sender: FDA-Public Use
  Company Number: 2005S1009058

PATIENT
  Age: 33 Year
  Sex: Female
  Weight: 94.8018 kg

DRUGS (10)
  1. CLOZAPINE [Suspect]
     Indication: SCHIZOPHRENIA, PARANOID TYPE
     Dosage: SEE IMAGE
     Route: 048
     Dates: start: 20011101
  2. CLOZAPINE [Suspect]
     Indication: SCHIZOPHRENIA, PARANOID TYPE
     Dosage: SEE IMAGE
     Route: 048
     Dates: start: 20011101
  3. FLUOXETINE [Concomitant]
  4. HYDROXYZINE [Concomitant]
  5. ATENOLOL [Concomitant]
  6. DOCUSATE SODIUM [Concomitant]
  7. FLUTICASONE PROPIONATE/SALMETEROL XINAFOATE [Concomitant]
  8. SALBUTAMOL [Concomitant]
  9. FLUTICASONE PROPIONATE [Concomitant]
  10. TERBINAFINE HCL [Concomitant]

REACTIONS (2)
  - GRANULOCYTOPENIA [None]
  - LEUKOPENIA [None]
